FAERS Safety Report 9005323 (Version 1)
Quarter: 2013Q1

REPORT INFORMATION
  Report Type: Spontaneous
  Country: US (occurrence: US)
  Receive Date: 20130108
  Receipt Date: 20130108
  Transmission Date: 20140127
  Serious: No
  Sender: FDA-Public Use
  Company Number: US-GLAXOSMITHKLINE-A1003232A

PATIENT
  Age: 24 Year
  Sex: Male

DRUGS (5)
  1. POTIGA [Suspect]
     Indication: CONVULSION
     Dosage: 200MG THREE TIMES PER DAY
     Route: 048
     Dates: start: 20120824
  2. COUMADIN [Concomitant]
  3. KEPPRA [Concomitant]
  4. TRILEPTAL [Concomitant]
  5. BANZEL [Concomitant]

REACTIONS (1)
  - Coagulation time prolonged [Not Recovered/Not Resolved]
